FAERS Safety Report 11350648 (Version 1)
Quarter: 2015Q3

REPORT INFORMATION
  Report Type: Spontaneous
  Country: US (occurrence: None)
  Receive Date: 20150806
  Receipt Date: 20150806
  Transmission Date: 20151125
  Serious: Yes (Other)
  Sender: FDA-Public Use
  Company Number: None

PATIENT
  Age: 43 Year
  Sex: Female

DRUGS (1)
  1. TAXOTERE [Suspect]
     Active Substance: DOCETAXEL
     Route: 042

REACTIONS (6)
  - Pain [None]
  - Skin reaction [None]
  - Erythema [None]
  - Inflammation [None]
  - Burning sensation [None]
  - Swelling [None]
